FAERS Safety Report 5875221-1 (Version None)
Quarter: 2008Q3

REPORT INFORMATION
  Report Type: 
  Country: None (occurrence: None)
  Receive Date: 20080909
  Receipt Date: 20080826
  Transmission Date: 20090109
  Serious: Yes (Death)
  Sender: FDA-Public Use
  Company Number: CN-GENENTECH-267205

PATIENT
  Sex: Male

DRUGS (2)
  1. BEVACIZUMAB [Suspect]
     Indication: BREAST CANCER METASTATIC
     Dosage: 900 MG, Q3W
     Route: 042
     Dates: start: 20080709
  2. DOCETAXEL [Concomitant]
     Indication: BREAST CANCER METASTATIC
     Dosage: 120 MG, Q3W
     Dates: start: 20080709

REACTIONS (1)
  - DEATH [None]
